FAERS Safety Report 22341102 (Version 1)
Quarter: 2023Q2

REPORT INFORMATION
  Report Type: Report from Study
  Country: US (occurrence: US)
  Receive Date: 20230518
  Receipt Date: 20230518
  Transmission Date: 20230722
  Serious: Yes (Hospitalization)
  Sender: FDA-Public Use
  Company Number: US-JNJFOC-20200340110

PATIENT
  Age: 16 Year
  Sex: Female
  Weight: 67 kg

DRUGS (21)
  1. ESKETAMINE [Suspect]
     Active Substance: ESKETAMINE
     Indication: Major depression
     Dates: start: 20200309, end: 20200323
  2. ESKETAMINE [Suspect]
     Active Substance: ESKETAMINE
     Indication: Suicidal ideation
  3. PLACEBO [Suspect]
     Active Substance: UNSPECIFIED INGREDIENT
     Indication: Suicidal ideation
     Route: 048
     Dates: start: 20200309, end: 20200323
  4. PLACEBO [Suspect]
     Active Substance: UNSPECIFIED INGREDIENT
     Indication: Major depression
  5. SERTRALINE [Concomitant]
     Active Substance: SERTRALINE HYDROCHLORIDE
     Indication: Major depression
     Route: 048
     Dates: start: 20200306, end: 20200308
  6. SERTRALINE [Concomitant]
     Active Substance: SERTRALINE HYDROCHLORIDE
     Route: 048
     Dates: start: 20200309, end: 20200316
  7. SERTRALINE [Concomitant]
     Active Substance: SERTRALINE HYDROCHLORIDE
     Route: 048
     Dates: start: 20200317, end: 20200324
  8. LORATADINE [Concomitant]
     Active Substance: LORATADINE
     Indication: Seasonal allergy
     Route: 048
     Dates: start: 20200306, end: 20200308
  9. LORATADINE [Concomitant]
     Active Substance: LORATADINE
     Route: 048
     Dates: start: 20200310, end: 20200311
  10. LORATADINE [Concomitant]
     Active Substance: LORATADINE
     Route: 048
     Dates: start: 20200315, end: 20200315
  11. LORATADINE [Concomitant]
     Active Substance: LORATADINE
     Route: 048
     Dates: start: 20200317, end: 20200317
  12. LORATADINE [Concomitant]
     Active Substance: LORATADINE
     Route: 048
     Dates: start: 20200402
  13. ZOLPIDEM [Concomitant]
     Active Substance: ZOLPIDEM TARTRATE
     Indication: Insomnia
     Route: 048
     Dates: start: 20200310, end: 20200317
  14. ZYRTEC [Concomitant]
     Active Substance: CETIRIZINE HYDROCHLORIDE
     Indication: Seasonal allergy
     Route: 048
     Dates: start: 20200322, end: 20200322
  15. ARIPIPRAZOLE [Concomitant]
     Active Substance: ARIPIPRAZOLE
     Indication: Major depression
     Route: 048
     Dates: start: 20200327
  16. ESCITALOPRAM [Concomitant]
     Active Substance: ESCITALOPRAM OXALATE
     Indication: Major depression
     Route: 048
     Dates: start: 20200329
  17. ROCEPHIN [Concomitant]
     Active Substance: CEFTRIAXONE SODIUM
     Indication: Suicide attempt
     Dates: start: 20200324, end: 20200324
  18. ACETYLCYSTEINE [Concomitant]
     Active Substance: ACETYLCYSTEINE
     Indication: Prophylaxis
     Dates: start: 20200324, end: 20200324
  19. ACETYLCYSTEINE [Concomitant]
     Active Substance: ACETYLCYSTEINE
     Dates: start: 20200325, end: 20200325
  20. POTASSIUM CHLORIDE [Concomitant]
     Active Substance: POTASSIUM CHLORIDE
     Indication: Hypokalaemia
     Dosage: 40 MG PER SQUARE METER
     Route: 048
     Dates: start: 20200325, end: 20200325
  21. ONDANSETRON HYDROCHLORIDE [Concomitant]
     Active Substance: ONDANSETRON HYDROCHLORIDE
     Indication: Nausea

REACTIONS (1)
  - Suicide attempt [Recovered/Resolved]

NARRATIVE: CASE EVENT DATE: 20200324
